FAERS Safety Report 6982211-4 (Version None)
Quarter: 2010Q3

REPORT INFORMATION
  Report Type: 
  Country: None (occurrence: None)
  Receive Date: 20100914
  Receipt Date: 20091204
  Transmission Date: 20110219
  Serious: No
  Sender: FDA-Public Use
  Company Number: US-PFIZER INC-2009306773

PATIENT
  Sex: Female
  Weight: 61.23 kg

DRUGS (4)
  1. LYRICA [Suspect]
     Indication: PROCEDURAL PAIN
     Dosage: 100 MG, 2X/DAY
     Route: 048
     Dates: start: 20090901
  2. LYRICA [Suspect]
     Indication: NEURALGIA
  3. LITHIUM CARBONATE [Concomitant]
     Dosage: UNK
     Route: 048
  4. ALLEGRA [Concomitant]
     Dosage: UNK
     Route: 048

REACTIONS (2)
  - VISION BLURRED [None]
  - VISUAL IMPAIRMENT [None]
